FAERS Safety Report 6885592-5 (Version None)
Quarter: 2010Q3

REPORT INFORMATION
  Report Type: 
  Country: None (occurrence: None)
  Receive Date: 20100729
  Receipt Date: 20080225
  Transmission Date: 20110219
  Serious: No
  Sender: FDA-Public Use
  Company Number: US-PFIZER INC-2008017878

PATIENT
  Sex: Female
  Weight: 52.272 kg

DRUGS (8)
  1. CELEBREX [Suspect]
     Indication: OSTEOARTHRITIS
     Dates: start: 20080201, end: 20080224
  2. LEVOTHYROXINE SODIUM [Concomitant]
  3. RANITIDINE [Concomitant]
  4. IBANDRONATE SODIUM [Concomitant]
  5. FISH OIL [Concomitant]
  6. OSTEO BI-FLEX [Concomitant]
  7. CALCIUM [Concomitant]
  8. VITAMIN B-12 [Concomitant]

REACTIONS (2)
  - DIARRHOEA [None]
  - INSOMNIA [None]
